FAERS Safety Report 8012877-1 (Version None)
Quarter: 2011Q4

REPORT INFORMATION
  Report Type: 
  Country: None (occurrence: None)
  Receive Date: 20111223
  Receipt Date: 20111223
  Transmission Date: 20120403
  Serious: Yes (Hospitalization, Disabling)
  Sender: FDA-Public Use
  Company Number: None

PATIENT
  Age: 30 Year
  Sex: Male
  Weight: 133.8111 kg

DRUGS (3)
  1. TRILAFON [Suspect]
     Indication: DRUG THERAPY
     Dosage: 2 MG A DAY 047
     Route: 048
     Dates: start: 19960930, end: 19970107
  2. LORAZEPAM [Concomitant]
  3. PAXIL [Concomitant]

REACTIONS (4)
  - DISABILITY [None]
  - AGGRESSION [None]
  - DISORIENTATION [None]
  - SUICIDE ATTEMPT [None]
